FAERS Safety Report 9307757 (Version 2)
Quarter: 2014Q2

REPORT INFORMATION
  Report Type: Spontaneous
  Country: IE (occurrence: IE)
  Receive Date: 20130524
  Receipt Date: 20140529
  Transmission Date: 20141212
  Serious: Yes (Hospitalization)
  Sender: FDA-Public Use
  Company Number: IE-NOVOPROD-378291

PATIENT
  Age: 60 Year
  Sex: Female
  Weight: 133 kg

DRUGS (21)
  1. VICTOZA [Suspect]
     Indication: TYPE 2 DIABETES MELLITUS
     Dosage: 0.6 MG, QD
     Route: 065
     Dates: start: 201206
  2. VICTOZA [Suspect]
     Dosage: 1.2 MG, QD
     Route: 065
  3. VICTOZA [Suspect]
     Dosage: 1.8 MG, QD (A MONTH LATER)
     Route: 065
     Dates: end: 201302
  4. LIVIAL [Concomitant]
     Dosage: 1 TAB, QD
     Route: 065
  5. LEXAPRO [Concomitant]
     Indication: DEPRESSION
     Dosage: 1 TAB, QD
     Route: 065
     Dates: start: 200811
  6. LEXAPRO [Concomitant]
     Indication: ANXIETY
  7. GLUCOPHAGE [Concomitant]
     Dosage: 1 TAB, BID
     Route: 065
  8. SALAMOL EASI-BREATHE [Concomitant]
     Dosage: 200 D 1 INHALER, 2 PUFFS QDS
     Route: 065
  9. EMCOR [Concomitant]
     Dosage: 1 TAB, QD
     Route: 065
  10. TRAVOCORT [Concomitant]
     Dosage: 1 APPLICATION TDS, 15 CREAM
     Route: 061
  11. ISTIN [Concomitant]
     Dosage: 1 TAB, QD
     Route: 065
  12. COZAAR COMP [Concomitant]
     Dosage: 1 TAB, QD
     Route: 065
  13. LIPITOR [Concomitant]
     Dosage: 1 TAB, QD
     Route: 065
  14. WARFARIN TEVA [Concomitant]
     Indication: ATRIAL FIBRILLATION
     Dosage: 1 TAB 0 TIMES PER DAY
     Route: 065
  15. WARFARIN TEVA [Concomitant]
     Indication: ATRIAL FIBRILLATION
     Dosage: 1 TAB 0 TIMES PER DAY
     Route: 065
  16. PARIET [Concomitant]
     Dosage: 20 MG, QD (PARIET 20MG GAST RESIST TABS)
     Route: 065
  17. WARFARIN TEVA [Concomitant]
     Indication: ATRIAL FIBRILLATION
     Dosage: 5 MG, QD
     Route: 065
  18. PARACETAMOL [Concomitant]
     Dosage: 2 TAB, TID
     Route: 065
  19. DIFENE [Concomitant]
     Dosage: GEL 50, (1 APPLICATION TDS)
     Route: 065
  20. LEXAPRO [Concomitant]
     Dosage: 1 TAB, QD
     Route: 065
  21. SOLPADEINE                         /00116401/ [Concomitant]
     Dosage: 2 TAB, BID (SOLPADEINE SOLUBLE)
     Route: 065

REACTIONS (6)
  - Obstruction [Recovered/Resolved]
  - Nausea [Recovering/Resolving]
  - Abdominal distension [Recovered/Resolved]
  - Painful respiration [Unknown]
  - Malaise [Unknown]
  - Abdominal pain upper [Unknown]
